FAERS Safety Report 16735926 (Version 1)
Quarter: 2019Q3

REPORT INFORMATION
  Report Type: Spontaneous
  Country: CA (occurrence: CA)
  Receive Date: 20190823
  Receipt Date: 20190823
  Transmission Date: 20191005
  Serious: Yes (Other)
  Sender: FDA-Public Use
  Company Number: CA-TEVA-2019-CA-1096164

PATIENT
  Age: 59 Year
  Sex: Female

DRUGS (23)
  1. SULFASALAZINE. [Suspect]
     Active Substance: SULFASALAZINE
     Indication: PRODUCT USED FOR UNKNOWN INDICATION
     Dosage: 2 GRAM DAILY;
     Route: 065
  2. METHOTREXATE. [Suspect]
     Active Substance: METHOTREXATE
     Route: 048
  3. HUMIRA [Suspect]
     Active Substance: ADALIMUMAB
     Indication: PSORIATIC ARTHROPATHY
     Route: 058
  4. CLONIDINE. [Concomitant]
     Active Substance: CLONIDINE
  5. ETANERCEPT [Suspect]
     Active Substance: ETANERCEPT
     Indication: PRODUCT USED FOR UNKNOWN INDICATION
     Route: 058
  6. OTEZLA [Suspect]
     Active Substance: APREMILAST
     Indication: PRODUCT USED FOR UNKNOWN INDICATION
     Route: 065
  7. LOSARTAN. [Concomitant]
     Active Substance: LOSARTAN
  8. GABAPENTIN. [Concomitant]
     Active Substance: GABAPENTIN
  9. HYDROXYCHLOROQUINE [Concomitant]
     Active Substance: HYDROXYCHLOROQUINE
  10. METOPROLOL. [Concomitant]
     Active Substance: METOPROLOL
  11. BACLOFEN. [Concomitant]
     Active Substance: BACLOFEN
  12. ENBREL [Suspect]
     Active Substance: ETANERCEPT
     Route: 058
  13. ACETAMINOPHEN. [Concomitant]
     Active Substance: ACETAMINOPHEN
  14. AMITRIPTYLINE [Concomitant]
     Active Substance: AMITRIPTYLINE
  15. ASPIRIN. [Concomitant]
     Active Substance: ASPIRIN
  16. ESOMEPRAZOLE. [Concomitant]
     Active Substance: ESOMEPRAZOLE MAGNESIUM
  17. METHOTREXATE. [Suspect]
     Active Substance: METHOTREXATE
     Indication: PRODUCT USED FOR UNKNOWN INDICATION
     Route: 048
  18. COSENTYX [Suspect]
     Active Substance: SECUKINUMAB
     Indication: PSORIATIC ARTHROPATHY
  19. ENBREL [Suspect]
     Active Substance: ETANERCEPT
     Indication: PRODUCT USED FOR UNKNOWN INDICATION
     Route: 058
  20. INFLIXIMAB [Suspect]
     Active Substance: INFLIXIMAB
     Indication: PSORIATIC ARTHROPATHY
     Route: 065
  21. BETAHISTINE [Concomitant]
     Active Substance: BETAHISTINE
  22. CALCIUM [Concomitant]
     Active Substance: CALCIUM
  23. MOMETASONE FUROATE. [Concomitant]
     Active Substance: MOMETASONE FUROATE

REACTIONS (9)
  - Rheumatoid arthritis [Not Recovered/Not Resolved]
  - Enthesopathy [Not Recovered/Not Resolved]
  - Stomatitis [Not Recovered/Not Resolved]
  - Palpitations [Not Recovered/Not Resolved]
  - Bursitis [Not Recovered/Not Resolved]
  - Musculoskeletal stiffness [Not Recovered/Not Resolved]
  - Oral pain [Not Recovered/Not Resolved]
  - Drug ineffective [Not Recovered/Not Resolved]
  - Tenosynovitis [Not Recovered/Not Resolved]
